FAERS Safety Report 13146331 (Version 1)
Quarter: 2017Q1

REPORT INFORMATION
  Report Type: Spontaneous
  Country: AU (occurrence: AU)
  Receive Date: 20170125
  Receipt Date: 20170125
  Transmission Date: 20170428
  Serious: Yes (Hospitalization)
  Sender: FDA-Public Use
  Company Number: AU-ROCHE-1883312

PATIENT
  Sex: Female

DRUGS (11)
  1. VALIUM [Suspect]
     Active Substance: DIAZEPAM
     Indication: PARTIAL SEIZURES
     Route: 065
  2. BENEFIBRE [Concomitant]
     Active Substance: INULIN
     Dosage: ONGOING
     Route: 065
     Dates: start: 2010
  3. DULCOLAX (BISACODYL) [Concomitant]
     Active Substance: BISACODYL
     Dosage: ONGOING
     Route: 065
     Dates: start: 2010
  4. TEGRETOL [Concomitant]
     Active Substance: CARBAMAZEPINE
     Indication: EPILEPSY
     Dosage: STARTED 5 YEARS AGO, ONGOING
     Route: 065
  5. VALIUM [Suspect]
     Active Substance: DIAZEPAM
     Indication: GENERALISED TONIC-CLONIC SEIZURE
  6. DILANTIN [Concomitant]
     Active Substance: PHENYTOIN
     Indication: EPILEPSY
     Dosage: 300MG OR 200MG ON ALT DAYS, START 5 YRS AGO,ONGOIN
     Route: 065
  7. VITAMIN C [Concomitant]
     Active Substance: ASCORBIC ACID
     Dosage: STARTED 5-6 YEARS AGO, ONGOING
     Route: 065
  8. LAMICTAL [Concomitant]
     Active Substance: LAMOTRIGINE
     Indication: EPILEPSY
     Dosage: (ONGOING) STARTED 5 YEARS AGO
     Route: 065
  9. KEPPRA [Concomitant]
     Active Substance: LEVETIRACETAM
     Indication: EPILEPSY
     Dosage: 2GM MANE 1.5GM NOCTE(ONGOING) STARTED 5 YEARS AGO
     Route: 065
  10. LOSEC [Concomitant]
     Active Substance: OMEPRAZOLE
     Dosage: STARTED 9-10 YRS AGO, ONGOING
     Route: 065
  11. HIPREX [Concomitant]
     Active Substance: METHENAMINE HIPPURATE
     Dosage: ONGOING
     Route: 065
     Dates: start: 2009

REACTIONS (2)
  - Partial seizures [Recovering/Resolving]
  - Drug ineffective [Unknown]

NARRATIVE: CASE EVENT DATE: 201609
